FAERS Safety Report 24055266 (Version 2)
Quarter: 2024Q3

REPORT INFORMATION
  Report Type: Report from Study
  Country: US (occurrence: US)
  Receive Date: 20240705
  Receipt Date: 20240822
  Transmission Date: 20241016
  Serious: Yes (Other)
  Sender: NOVARTIS
  Company Number: US-002147023-NVSC2024US089813

PATIENT
  Sex: Female

DRUGS (1)
  1. KESIMPTA [Suspect]
     Active Substance: OFATUMUMAB
     Indication: Relapsing multiple sclerosis
     Dosage: UNK, QMO
     Route: 058

REACTIONS (14)
  - Urinary retention [Recovered/Resolved]
  - Muscular weakness [Recovering/Resolving]
  - Musculoskeletal stiffness [Unknown]
  - Feeling abnormal [Unknown]
  - Memory impairment [Recovered/Resolved]
  - Vision blurred [Recovered/Resolved]
  - Fatigue [Recovered/Resolved]
  - Headache [Recovered/Resolved]
  - Migraine [Recovered/Resolved]
  - Sciatica [Recovered/Resolved]
  - Visual impairment [Recovered/Resolved]
  - Weight decreased [Recovered/Resolved]
  - Product supply issue [Unknown]
  - Inappropriate schedule of product administration [Unknown]
